FAERS Safety Report 6862309-1 (Version None)
Quarter: 2010Q3

REPORT INFORMATION
  Report Type: 
  Country: None (occurrence: None)
  Receive Date: 20100721
  Receipt Date: 20100707
  Transmission Date: 20110219
  Serious: Yes (Other)
  Sender: FDA-Public Use
  Company Number: PHHY2010US44331

PATIENT
  Sex: Male

DRUGS (2)
  1. ZOMETA [Suspect]
  2. REVLIMID [Suspect]
     Indication: MULTIPLE MYELOMA
     Dosage: 10 MG, UNK
     Route: 048
     Dates: start: 20100527

REACTIONS (2)
  - ABSCESS JAW [None]
  - OSTEONECROSIS OF JAW [None]
